FAERS Safety Report 4647588-3 (Version None)
Quarter: 2005Q2

REPORT INFORMATION
  Report Type: 
  Country: None (occurrence: None)
  Receive Date: 20050427
  Receipt Date: 20050427
  Transmission Date: 20051028
  Serious: Yes (Life-Threatening, Hospitalization)
  Sender: FDA-Public Use
  Company Number: None

PATIENT
  Age: 37 Year
  Sex: Male
  Weight: 68.9467 kg

DRUGS (7)
  1. CLOZAPINE [Suspect]
     Indication: SCHIZOAFFECTIVE DISORDER
     Dosage: TAPERED DOSE UP TO 300MG
     Dates: start: 20050208, end: 20050221
  2. RISPERDAL [Concomitant]
  3. APAP TAB [Concomitant]
  4. ROCEPHIN [Concomitant]
  5. VPA [Concomitant]
  6. LAMICTAL [Concomitant]
  7. COGENTIN [Concomitant]

REACTIONS (3)
  - LETHARGY [None]
  - ORAL INTAKE REDUCED [None]
  - PYREXIA [None]
